FAERS Safety Report 25051400 (Version 1)
Quarter: 2025Q1

REPORT INFORMATION
  Report Type: Report from Study
  Country: IN (occurrence: IN)
  Receive Date: 20250307
  Receipt Date: 20250307
  Transmission Date: 20250409
  Serious: Yes (Other)
  Sender: ROCHE
  Company Number: IN-002147023-NVSC2025IN035230

PATIENT
  Age: 50 Year
  Sex: Male

DRUGS (1)
  1. RANIBIZUMAB [Suspect]
     Active Substance: RANIBIZUMAB
     Indication: Retinal vein occlusion
     Route: 042
     Dates: start: 20240826

REACTIONS (6)
  - Cystoid macular oedema [Unknown]
  - Periorbital swelling [Unknown]
  - Hypertension [Unknown]
  - Eye haemorrhage [Unknown]
  - Foveal reflex abnormal [Unknown]
  - Lipids abnormal [Unknown]

NARRATIVE: CASE EVENT DATE: 20250217
